FAERS Safety Report 12913260 (Version 2)
Quarter: 2016Q4

REPORT INFORMATION
  Report Type: Spontaneous
  Country: US (occurrence: US)
  Receive Date: 20161104
  Receipt Date: 20161206
  Transmission Date: 20170207
  Serious: Yes (Death, Hospitalization)
  Sender: FDA-Public Use
  Company Number: US-ACTELION-A-NJ2016-144868

PATIENT
  Age: 59 Year
  Sex: Female

DRUGS (7)
  1. DIOVAN [Concomitant]
     Active Substance: VALSARTAN
     Dosage: 80 MG, QD
     Route: 048
  2. LASIX [Concomitant]
     Active Substance: FUROSEMIDE
     Dosage: 20 MG, BID
     Route: 048
  3. HYCODAN [Concomitant]
     Active Substance: HOMATROPINE METHYLBROMIDE\HYDROCODONE BITARTRATE
     Dosage: 5 ML, QID
  4. AMLODIPINE [Concomitant]
     Active Substance: AMLODIPINE BESYLATE
     Dosage: 5 MG, QD
     Route: 048
  5. OPSUMIT [Suspect]
     Active Substance: MACITENTAN
     Indication: PULMONARY ARTERIAL HYPERTENSION
     Dosage: 10 MG, UNK
     Route: 048
     Dates: start: 20160311
  6. VELETRI [Suspect]
     Active Substance: EPOPROSTENOL
     Indication: PULMONARY ARTERIAL HYPERTENSION
     Route: 042
  7. OXYGEN. [Concomitant]
     Active Substance: OXYGEN
     Dosage: 6-8 L, UNK

REACTIONS (17)
  - Syncope [Fatal]
  - Dyspnoea [Fatal]
  - Pulse absent [Fatal]
  - Oxygen saturation decreased [Fatal]
  - Pneumonia [Unknown]
  - Cardiac failure [Fatal]
  - Pulmonary hypertension [Fatal]
  - Pulmonary arterial pressure increased [Fatal]
  - Blood pressure decreased [Fatal]
  - Cardiogenic shock [Fatal]
  - Acute kidney injury [Fatal]
  - Hypoxia [Fatal]
  - Treatment noncompliance [Unknown]
  - Dyspnoea exertional [Fatal]
  - Cardiac arrest [Fatal]
  - Oedema peripheral [Fatal]
  - Troponin increased [Unknown]
